FAERS Safety Report 5821209-6 (Version None)
Quarter: 2008Q3

REPORT INFORMATION
  Report Type: 
  Country: None (occurrence: None)
  Receive Date: 20080722
  Receipt Date: 20080710
  Transmission Date: 20090109
  Serious: Yes (Other)
  Sender: FDA-Public Use
  Company Number: 2008018081

PATIENT
  Sex: Female

DRUGS (2)
  1. BENADRYL [Suspect]
     Indication: DRUG USE FOR UNKNOWN INDICATION
     Dosage: ONE TABLET UNSPECIFIED (25 MG), ORAL
     Route: 048
  2. XANAX [Suspect]
     Dosage: UNSPECIFIED,

REACTIONS (1)
  - SUICIDAL IDEATION [None]
